FAERS Safety Report 8431231-1 (Version None)
Quarter: 2012Q2

REPORT INFORMATION
  Report Type: 
  Country: None (occurrence: None)
  Receive Date: 20120613
  Receipt Date: 20120531
  Transmission Date: 20120825
  Serious: Yes (Hospitalization)
  Sender: FDA-Public Use
  Company Number: FR-BRISTOL-MYERS SQUIBB COMPANY-16659211

PATIENT
  Age: 65 Year
  Sex: Female

DRUGS (11)
  1. CYTARABINE [Suspect]
     Dosage: 07 TO 20-MAR-2012, THEN FROM 28 TO 29-MAR-2012: METHOTREXATE + CYTARABINE + METHYLPREDNISOLONE
     Route: 037
     Dates: start: 20120307
  2. LASIX [Suspect]
     Dates: start: 20120406
  3. INNOHEP [Suspect]
  4. IMIPENEM AND CILASTATIN SODIUM [Suspect]
     Indication: ACUTE LEUKAEMIA
     Dates: start: 20120401, end: 20120406
  5. FLUCONAZOLE [Suspect]
  6. XANAX [Concomitant]
  7. SPRYCEL [Suspect]
     Indication: ACUTE LEUKAEMIA
     Dosage: TO 30-MAR-2012, THEN FROM 28 TO 29MAR12 AND ON 01-APR-2012: SPRYCEL + VINCRISTINE
     Dates: start: 20120307
  8. VINCRISTINE SULFATE [Suspect]
     Indication: ACUTE LEUKAEMIA
     Dates: start: 20120307, end: 20120330
  9. METHYLPREDNISOLONE [Suspect]
     Dosage: 07 TO 20-MAR-2012, THEN FROM 28 TO 29-MAR-2012: METHOTREXATE + CYTARABINE + METHYLPREDNISOLONE
     Route: 037
     Dates: start: 20120307
  10. ACUPAN [Suspect]
     Indication: ACUTE LEUKAEMIA
     Dates: start: 20120401, end: 20120406
  11. METHOTREXATE [Suspect]
     Dosage: 07 TO 20-MAR-2012, THEN FROM 28 TO 29-MAR-2012: METHOTREXATE + CYTARABINE + METHYLPREDNISOLONE
     Route: 037
     Dates: start: 20120307

REACTIONS (1)
  - DRUG RASH WITH EOSINOPHILIA AND SYSTEMIC SYMPTOMS [None]
